FAERS Safety Report 13027394 (Version 1)
Quarter: 2016Q4

REPORT INFORMATION
  Report Type: Spontaneous
  Country: US (occurrence: US)
  Receive Date: 20161214
  Receipt Date: 20161214
  Transmission Date: 20170207
  Serious: No
  Sender: FDA-Public Use
  Company Number: US-ENDO PHARMACEUTICALS INC.-2016-001294

PATIENT
  Sex: Male
  Weight: 95.34 kg

DRUGS (1)
  1. HYDROCODONE BITARTRATE AND ACETAMINOPHEN [Suspect]
     Active Substance: ACETAMINOPHEN\HYDROCODONE BITARTRATE
     Indication: ARTHRALGIA
     Dosage: ONE TABLET 8-10 TIMES A DAY
     Route: 048

REACTIONS (6)
  - Inappropriate schedule of drug administration [Unknown]
  - Intentional overdose [Unknown]
  - Body height decreased [Unknown]
  - Drug effect decreased [Unknown]
  - Abnormal loss of weight [Unknown]
  - Pain [Unknown]
